FAERS Safety Report 9947285 (Version 1)
Quarter: 2014Q1

REPORT INFORMATION
  Report Type: Report from Study
  Country: US (occurrence: US)
  Receive Date: 20140303
  Receipt Date: 20140303
  Transmission Date: 20141002
  Serious: No
  Sender: FDA-Public Use
  Company Number: US-ABBVIE-13P-163-1062072-00

PATIENT
  Age: 64 Year
  Sex: Female

DRUGS (5)
  1. HUMIRA [Suspect]
     Indication: RHEUMATOID ARTHRITIS
     Route: 058
     Dates: start: 201210
  2. LIPITOR [Concomitant]
     Indication: BLOOD CHOLESTEROL INCREASED
  3. TRIAMTERENE [Concomitant]
     Indication: HYPERTENSION
     Dosage: 37.5/25MG
  4. LISINOPRIL [Concomitant]
     Indication: HYPERTENSION
  5. VITAMINS NOS [Concomitant]
     Indication: PRODUCT USED FOR UNKNOWN INDICATION

REACTIONS (1)
  - Bronchitis [Recovering/Resolving]
